FAERS Safety Report 25498455 (Version 1)
Quarter: 2025Q3

REPORT INFORMATION
  Report Type: Spontaneous
  Country: EU (occurrence: EU)
  Receive Date: 20250701
  Receipt Date: 20250701
  Transmission Date: 20251020
  Serious: Yes (Other)
  Sender: AUROBINDO
  Company Number: EU-ELI_LILLY_AND_COMPANY-IT202506006941

PATIENT
  Sex: Female

DRUGS (4)
  1. LETROZOLE [Suspect]
     Active Substance: LETROZOLE
     Indication: Product used for unknown indication
     Route: 065
     Dates: start: 20250107
  2. ABEMACICLIB [Suspect]
     Active Substance: ABEMACICLIB
     Indication: Product used for unknown indication
     Dosage: 200 MILLIGRAM, ONCE A DAY
     Route: 065
  3. ABEMACICLIB [Suspect]
     Active Substance: ABEMACICLIB
     Dosage: 300 MILLIGRAM, ONCE A DAY
     Route: 065
     Dates: start: 20250107
  4. ABEMACICLIB [Suspect]
     Active Substance: ABEMACICLIB
     Dosage: 100 MILLIGRAM, ONCE A DAY
     Route: 065
     Dates: start: 20250507

REACTIONS (4)
  - Renal failure [Unknown]
  - Hypophagia [Unknown]
  - Diarrhoea [Unknown]
  - Stomatitis [Unknown]

NARRATIVE: CASE EVENT DATE: 20250116
